FAERS Safety Report 17868880 (Version 2)
Quarter: 2020Q3

REPORT INFORMATION
  Report Type: Report from Study
  Country: None (occurrence: US)
  Receive Date: 20200607
  Receipt Date: 20200817
  Transmission Date: 20201103
  Serious: Yes (Death, Hospitalization, Other)
  Sender: FDA-Public Use
  Company Number: US-ABBVIE-20K-163-3431439-00

PATIENT
  Age: 74 Year
  Sex: Male

DRUGS (1)
  1. SKYRIZI [Suspect]
     Active Substance: RISANKIZUMAB-RZAA
     Indication: PSORIASIS
     Route: 058

REACTIONS (4)
  - Unresponsive to stimuli [Not Recovered/Not Resolved]
  - Hospice care [Not Recovered/Not Resolved]
  - Death [Fatal]
  - Oxygen saturation decreased [Unknown]

NARRATIVE: CASE EVENT DATE: 2020
